FAERS Safety Report 25179897 (Version 1)
Quarter: 2025Q2

REPORT INFORMATION
  Report Type: Spontaneous
  Country: GB (occurrence: GB)
  Receive Date: 20250409
  Receipt Date: 20250409
  Transmission Date: 20250716
  Serious: Yes (Other)
  Sender: MAYNE
  Company Number: GB-MAYNE PHARMA-2025MYN000194

PATIENT

DRUGS (1)
  1. ESTRADIOL [Suspect]
     Active Substance: ESTRADIOL
     Indication: Osteoporosis prophylaxis
     Route: 065

REACTIONS (2)
  - Vaginal haemorrhage [Unknown]
  - Off label use [Unknown]
